FAERS Safety Report 9822811 (Version 5)
Quarter: 2014Q3

REPORT INFORMATION
  Report Type: Spontaneous
  Country: US (occurrence: US)
  Receive Date: 20140116
  Receipt Date: 20140715
  Transmission Date: 20150326
  Serious: Yes (Life-Threatening, Hospitalization, Disabling, Other)
  Sender: FDA-Public Use
  Company Number: US-009507513-1401USA004856

PATIENT
  Sex: Female
  Weight: 102.4 kg

DRUGS (6)
  1. JANUVIA [Suspect]
     Active Substance: SITAGLIPTIN PHOSPHATE
     Indication: TYPE 2 DIABETES MELLITUS
     Dosage: 100 MG, QD
     Route: 048
     Dates: start: 20080226, end: 20080514
  2. JANUMET [Suspect]
     Active Substance: METFORMIN HYDROCHLORIDE\SITAGLIPTIN PHOSPHATE
     Indication: TYPE 2 DIABETES MELLITUS
     Dosage: 50-500 MG, QD
     Route: 048
     Dates: start: 20080515, end: 20110214
  3. CYANOCOBALAMIN. [Concomitant]
     Active Substance: CYANOCOBALAMIN
     Indication: HERPES ZOSTER
     Dosage: UNK
     Route: 030
     Dates: start: 2004, end: 2012
  4. CYMBALTA [Concomitant]
     Active Substance: DULOXETINE HYDROCHLORIDE
     Indication: ANXIETY
     Dosage: 60 MG, UNK
     Dates: start: 2000, end: 2011
  5. INSULIN [Concomitant]
     Active Substance: INSULIN NOS
     Indication: DIABETES MELLITUS
  6. NOVOLOG [Concomitant]
     Active Substance: INSULIN ASPART

REACTIONS (36)
  - Pancreatic carcinoma [Unknown]
  - Splenectomy [Unknown]
  - Malignant hypertension [Unknown]
  - Chest pain [Unknown]
  - Tonsillectomy [Unknown]
  - Gastritis [Unknown]
  - Endometriosis [Unknown]
  - Rash [Unknown]
  - Metastases to liver [Unknown]
  - Wound [Unknown]
  - Vitamin B12 deficiency [Unknown]
  - Blindness unilateral [Unknown]
  - Chronic gastritis [Not Recovered/Not Resolved]
  - Hyperthyroidism [Unknown]
  - Conjunctivitis [Unknown]
  - Feeling abnormal [Unknown]
  - Abdominal pain upper [Unknown]
  - Insomnia [Unknown]
  - Oesophagitis [Unknown]
  - Upper respiratory tract infection [Unknown]
  - Gastric ulcer [Unknown]
  - Depression [Unknown]
  - Anxiety [Unknown]
  - Back pain [Unknown]
  - Headache [Unknown]
  - Helicobacter infection [Unknown]
  - Erythema [Unknown]
  - Abdominal pain [Unknown]
  - Pancreaticoduodenectomy [Unknown]
  - Hysterectomy [Unknown]
  - Oophorectomy [Unknown]
  - Fatigue [Unknown]
  - Drug ineffective [Unknown]
  - Inappropriate schedule of drug administration [Unknown]
  - Renal stone removal [Unknown]
  - Gastrooesophageal reflux disease [Unknown]

NARRATIVE: CASE EVENT DATE: 20080515
